FAERS Safety Report 17533461 (Version 1)
Quarter: 2020Q1

REPORT INFORMATION
  Report Type: Spontaneous
  Country: US (occurrence: US)
  Receive Date: 20200304
  Receipt Date: 20200304
  Transmission Date: 20200409
  Serious: No
  Sender: FDA-Public Use
  Company Number: None

PATIENT
  Age: 68 Year
  Sex: Male

DRUGS (1)
  1. COPAXONE [Suspect]
     Active Substance: GLATIRAMER ACETATE
     Indication: MULTIPLE SCLEROSIS
     Route: 058
     Dates: start: 20170213

REACTIONS (6)
  - Insomnia [None]
  - Pain [None]
  - Tachycardia [None]
  - Anxiety [None]
  - Muscle twitching [None]
  - Agitation [None]

NARRATIVE: CASE EVENT DATE: 20200224
